FAERS Safety Report 15972497 (Version 2)
Quarter: 2019Q1

REPORT INFORMATION
  Report Type: Spontaneous
  Country: US (occurrence: US)
  Receive Date: 20190216
  Receipt Date: 20190225
  Transmission Date: 20190418
  Serious: No
  Sender: FDA-Public Use
  Company Number: PHEH2019US006797

PATIENT
  Sex: Female

DRUGS (1)
  1. AFINITOR [Suspect]
     Active Substance: EVEROLIMUS
     Indication: BREAST CANCER FEMALE
     Dosage: 10 MG, QD
     Route: 048

REACTIONS (8)
  - Fatigue [Unknown]
  - Epistaxis [Unknown]
  - Appetite disorder [Unknown]
  - Depression [Unknown]
  - Stomatitis [Unknown]
  - Headache [Unknown]
  - Hypertrophy of tongue papillae [Unknown]
  - Asthenia [Unknown]
